FAERS Safety Report 8432232 (Version 2)
Quarter: 2012Q4

REPORT INFORMATION
  Report Type: Spontaneous
  Country: US (occurrence: None)
  Receive Date: 20120213
  Receipt Date: 20121015
  Transmission Date: 20130627
  Serious: Yes (Hospitalization)
  Sender: FDA-Public Use
  Company Number: 2012031049

PATIENT
  Sex: Male
  Weight: 122.47 kg

DRUGS (18)
  1. HIZENTRA [Suspect]
     Indication: IMMUNODEFICIENCY
     Dosage: SEE IMAGE
     Route: 058
     Dates: start: 20111020
  2. HIZENTRA [Suspect]
     Indication: IMMUNODEFICIENCY
     Dosage: 7 g 1x/week, (35 ml) 2 sites over 1 hour 16 minutes subcutaneous
     Dates: start: 20120122
  3. HIZENTRA [Suspect]
     Indication: IMMUNODEFICIENCY
     Route: 058
  4. HIZENTRA [Suspect]
     Indication: IMMUNODEFICIENCY
     Route: 058
  5. HIZENTRA [Suspect]
     Indication: IMMUNODEFICIENCY
     Dosage: 2 g 1x/week, in 2-3 sites over 1 hour, 34 minutes subcutaneous
  6. HIZENTRA [Suspect]
     Indication: IMMUNODEFICIENCY
     Dosage: 4 g 1x/week, in 2-3 sites over 1 hour, 34 minutes subcutaneous
  7. HIZENTRA [Suspect]
     Indication: IMMUNODEFICIENCY
     Dosage: 4 g 1x/week, in 2-3 sites over 1 hour, 34 minutes subcutaneous
  8. FUROSEMIDE (FUROSEMIDE) [Concomitant]
  9. SPIRONOLACTONE (SPIRONOLACTONE) [Concomitant]
  10. LACTULOSE (LACTULOSE) [Concomitant]
  11. ONDANSETRON HCL (ONDANSETRON) [Concomitant]
  12. METOCLOPRAMIDE [Concomitant]
  13. MIRAPEX [Concomitant]
  14. MULTI-VITAMIN [Concomitant]
  15. OMEPRAZOLE [Concomitant]
  16. LORTAB [Concomitant]
  17. XIFAXAN (RIFAXIMIN) [Concomitant]
  18. DIPHENHYDRAMINE (DIPHENHYDRAMINE) [Concomitant]

REACTIONS (3)
  - Influenza like illness [None]
  - Haemoglobin decreased [None]
  - Oedema [None]
